FAERS Safety Report 17806691 (Version 1)
Quarter: 2020Q2

REPORT INFORMATION
  Report Type: Spontaneous
  Country: US (occurrence: US)
  Receive Date: 20200519
  Receipt Date: 20200519
  Transmission Date: 20200714
  Serious: No
  Sender: FDA-Public Use
  Company Number: None

PATIENT
  Age: 68 Year
  Sex: Female

DRUGS (1)
  1. IBRANCE [Suspect]
     Active Substance: PALBOCICLIB
     Indication: BREAST CANCER FEMALE
     Dates: start: 20200127

REACTIONS (4)
  - Nausea [None]
  - Decreased appetite [None]
  - Vomiting [None]
  - Epistaxis [None]

NARRATIVE: CASE EVENT DATE: 20200519
